FAERS Safety Report 12712747 (Version 2)
Quarter: 2016Q4

REPORT INFORMATION
  Report Type: Report from Study
  Country: CA (occurrence: CA)
  Receive Date: 20160902
  Receipt Date: 20161005
  Transmission Date: 20170207
  Serious: Yes (Other)
  Sender: FDA-Public Use
  Company Number: CA-ALEXION PHARMACEUTICALS INC.-A201606438

PATIENT
  Age: 17 Year
  Sex: Female
  Weight: 56 kg

DRUGS (1)
  1. SOLIRIS [Suspect]
     Active Substance: ECULIZUMAB
     Indication: HAEMOLYTIC URAEMIC SYNDROME
     Dosage: 900 MG, QW
     Route: 042
     Dates: start: 20160822

REACTIONS (5)
  - Blood lactate dehydrogenase abnormal [Unknown]
  - Cerebrovascular accident [Recovered/Resolved]
  - Retinal vein occlusion [Not Recovered/Not Resolved]
  - Blindness [Recovered/Resolved]
  - Platelet count abnormal [Unknown]

NARRATIVE: CASE EVENT DATE: 20160822
